FAERS Safety Report 4326297-4 (Version None)
Quarter: 2004Q1

REPORT INFORMATION
  Report Type: 
  Country: None (occurrence: None)
  Receive Date: 20040325
  Receipt Date: 20040128
  Transmission Date: 20041129
  Serious: No
  Sender: FDA-Public Use
  Company Number: US065120

PATIENT
  Age: 59 Year
  Sex: Female

DRUGS (4)
  1. NEULASTA [Suspect]
     Indication: CHEMOTHERAPY
     Dates: start: 20040106
  2. DOXORUBICIN HYDROCHLORIDE [Concomitant]
  3. CYCLOPHOSPHAMIDE [Concomitant]
  4. ONDANSETRON HCL [Concomitant]

REACTIONS (3)
  - FLUSHING [None]
  - MUSCULOSKELETAL STIFFNESS [None]
  - PAIN [None]
